FAERS Safety Report 8555488-1 (Version None)
Quarter: 2012Q3

REPORT INFORMATION
  Report Type: 
  Country: None (occurrence: None)
  Receive Date: 20120731
  Receipt Date: 20111128
  Transmission Date: 20120928
  Serious: No
  Sender: FDA-Public Use
  Company Number: US-ASTRAZENECA-2011SE21977

PATIENT
  Age: 65 Year
  Sex: Female
  Weight: 81.6 kg

DRUGS (6)
  1. SEROQUEL [Suspect]
     Indication: INSOMNIA
     Route: 048
  2. JANUZIA [Concomitant]
     Indication: DIABETES MELLITUS
     Route: 065
  3. GLYCERIDE METFORMIN [Concomitant]
     Indication: DIABETES MELLITUS
     Route: 065
  4. SEROQUEL [Suspect]
     Route: 048
  5. HYDRALAZINE HCL [Concomitant]
     Indication: HYPERTENSION
     Route: 065
  6. CLONIDINE [Concomitant]
     Indication: HYPERTENSION
     Route: 065

REACTIONS (10)
  - DRUG DOSE OMISSION [None]
  - DISTURBANCE IN ATTENTION [None]
  - NECK PAIN [None]
  - IRRITABILITY [None]
  - DRUG PRESCRIBING ERROR [None]
  - BLOOD GLUCOSE FLUCTUATION [None]
  - VISUAL IMPAIRMENT [None]
  - INSOMNIA [None]
  - FEELING ABNORMAL [None]
  - DIABETES MELLITUS [None]
